FAERS Safety Report 10581840 (Version 2)
Quarter: 2014Q4

REPORT INFORMATION
  Report Type: Spontaneous
  Country: US (occurrence: US)
  Receive Date: 20141113
  Receipt Date: 20141224
  Transmission Date: 20150529
  Serious: Yes (Other)
  Sender: FDA-Public Use
  Company Number: US-ALLERGAN-1423344US

PATIENT
  Age: 62 Year
  Sex: Female

DRUGS (2)
  1. LUMIGAN [Suspect]
     Active Substance: BIMATOPROST
     Indication: GLAUCOMA
     Dosage: UNK
     Route: 047
     Dates: start: 2011
  2. COMBIGAN[R] [Suspect]
     Active Substance: BRIMONIDINE TARTRATE\TIMOLOL MALEATE
     Indication: GLAUCOMA
     Dosage: UNK
     Route: 047
     Dates: start: 2014, end: 2014

REACTIONS (8)
  - Dyspnoea [Unknown]
  - Paraesthesia [Unknown]
  - Macular fibrosis [Unknown]
  - Blood pressure decreased [Unknown]
  - Hair growth abnormal [Unknown]
  - Dry eye [Unknown]
  - Eye irritation [Unknown]
  - Dizziness [Unknown]
